FAERS Safety Report 17858339 (Version 2)
Quarter: 2020Q2

REPORT INFORMATION
  Report Type: Report from Study
  Country: None (occurrence: US)
  Receive Date: 20200604
  Receipt Date: 20200605
  Transmission Date: 20200714
  Serious: No
  Sender: FDA-Public Use
  Company Number: US-US WORLDMEDS, LLC-USW201906-001201

PATIENT
  Age: 75 Year
  Sex: Male

DRUGS (3)
  1. APOKYN [Suspect]
     Active Substance: APOMORPHINE HYDROCHLORIDE
     Indication: PARKINSON^S DISEASE
     Dosage: 30 MG/10 ML
     Route: 058
     Dates: start: 20190613
  2. CARBIDOPA LEVODOPA [Concomitant]
     Active Substance: CARBIDOPA\LEVODOPA
     Indication: PARKINSON^S DISEASE
  3. NEUPLAZID [Concomitant]

REACTIONS (3)
  - Paranoia [Recovering/Resolving]
  - Anxiety [Recovering/Resolving]
  - Nervousness [Recovering/Resolving]

NARRATIVE: CASE EVENT DATE: 20190620
